FAERS Safety Report 5123471-4 (Version None)
Quarter: 2006Q4

REPORT INFORMATION
  Report Type: 
  Country: None (occurrence: None)
  Receive Date: 20061009
  Receipt Date: 20060811
  Transmission Date: 20070319
  Serious: Yes (Disabling)
  Sender: FDA-Public Use
  Company Number: FI-ABBOTT-06P-055-0340461-00

PATIENT
  Sex: Female
  Weight: 94 kg

DRUGS (1)
  1. REDUCTIL [Suspect]
     Indication: OVERWEIGHT
     Dates: start: 20060501

REACTIONS (1)
  - MENIERE'S DISEASE [None]
